FAERS Safety Report 4316551-4 (Version None)
Quarter: 2004Q1

REPORT INFORMATION
  Report Type: 
  Country: None (occurrence: None)
  Receive Date: 20040308
  Receipt Date: 20031121
  Transmission Date: 20041129
  Serious: Yes (Other)
  Sender: FDA-Public Use
  Company Number: PHEH2003US10788

PATIENT
  Sex: Male

DRUGS (4)
  1. GLEEVEC [Suspect]
     Indication: CHRONIC MYELOID LEUKAEMIA
     Dosage: 300 MG, QD, ORAL
     Route: 048
  2. HYDROCHLOROTHIAZIDE [Concomitant]
  3. VERAPAMIL [Concomitant]
  4. ENALAPRIL MALEATE [Concomitant]

REACTIONS (3)
  - BLOOD CREATININE INCREASED [None]
  - BLOOD UREA INCREASED [None]
  - RENAL IMPAIRMENT [None]
